FAERS Safety Report 6653594-X (Version None)
Quarter: 2010Q1

REPORT INFORMATION
  Report Type: 
  Country: None (occurrence: None)
  Receive Date: 20100326
  Receipt Date: 20100316
  Transmission Date: 20100710
  Serious: Yes (Hospitalization)
  Sender: FDA-Public Use
  Company Number: DE-ABBOTT-10P-062-0629198-00

PATIENT
  Sex: Male
  Weight: 89 kg

DRUGS (3)
  1. HUMIRA [Suspect]
     Indication: RHEUMATOID ARTHRITIS
     Route: 058
     Dates: start: 20090723
  2. PREDNISOLON [Suspect]
     Indication: RHEUMATOID ARTHRITIS
     Dates: start: 20090301
  3. METHOTREXATE [Concomitant]
     Indication: RHEUMATOID ARTHRITIS
     Dosage: 1 PER WEEK
     Route: 058
     Dates: start: 20090504

REACTIONS (1)
  - SYNOVIAL CYST [None]
